FAERS Safety Report 19776924 (Version 1)
Quarter: 2021Q3

REPORT INFORMATION
  Report Type: Spontaneous
  Country: US (occurrence: US)
  Receive Date: 20210902
  Receipt Date: 20210902
  Transmission Date: 20211014
  Serious: No
  Sender: FDA-Public Use
  Company Number: US-ORGANON-O2108USA001253

PATIENT
  Age: 38 Year
  Sex: Female
  Weight: 61.69 kg

DRUGS (1)
  1. NEXPLANON [Suspect]
     Active Substance: ETONOGESTREL
     Indication: CONTRACEPTION
     Dosage: 1 DOSAGE FORM; LEFT ARM
     Route: 059
     Dates: start: 20210714

REACTIONS (8)
  - Complication associated with device [Not Recovered/Not Resolved]
  - Paraesthesia [Not Recovered/Not Resolved]
  - Implant site pain [Not Recovered/Not Resolved]
  - Device issue [Not Recovered/Not Resolved]
  - Device placement issue [Not Recovered/Not Resolved]
  - Complication of device removal [Not Recovered/Not Resolved]
  - Hypoaesthesia [Not Recovered/Not Resolved]
  - Complication of device insertion [Not Recovered/Not Resolved]

NARRATIVE: CASE EVENT DATE: 2021
